FAERS Safety Report 4699055-9 (Version None)
Quarter: 2005Q2

REPORT INFORMATION
  Report Type: 
  Country: None (occurrence: None)
  Receive Date: 20050620
  Receipt Date: 20050620
  Transmission Date: 20051028
  Serious: Yes (Hospitalization)
  Sender: FDA-Public Use
  Company Number: None

PATIENT
  Sex: Female
  Weight: 45.8133 kg

DRUGS (5)
  1. THALIDOMIDE [Suspect]
     Indication: MULTIPLE MYELOMA
     Dosage: 100 MG PO QHS
     Route: 048
     Dates: start: 20050531
  2. VELCADE [Suspect]
     Indication: MULTIPLE MYELOMA
     Dosage: 1.4 MG IVP (DAYS 1,4,8,11)
     Route: 042
     Dates: start: 20050531
  3. VELCADE [Suspect]
     Indication: MULTIPLE MYELOMA
     Dosage: 1.4 MG IVP (DAYS 1,4,8,11)
     Route: 042
     Dates: start: 20050603
  4. DECADRON [Concomitant]
  5. ALOXI [Concomitant]

REACTIONS (6)
  - ABDOMINAL DISTENSION [None]
  - ABDOMINAL RIGIDITY [None]
  - CARDIAC FLUTTER [None]
  - DYSPNOEA [None]
  - MYOCARDIAL INFARCTION [None]
  - VOMITING [None]
